FAERS Safety Report 18543094 (Version 1)
Quarter: 2020Q4

REPORT INFORMATION
  Report Type: Spontaneous
  Country: BE (occurrence: BE)
  Receive Date: 20201125
  Receipt Date: 20201125
  Transmission Date: 20210114
  Serious: Yes (Hospitalization, Other)
  Sender: FDA-Public Use
  Company Number: BE-AUROBINDO-AUR-APL-2017-18989

PATIENT
  Age: 34 Year
  Sex: Female

DRUGS (3)
  1. VENLAFAXINE [Suspect]
     Active Substance: VENLAFAXINE HYDROCHLORIDE
     Indication: PRODUCT USED FOR UNKNOWN INDICATION
     Dosage: UPTO 7.5 GRAM OF EXTENDED-RELEASE
     Route: 048
  2. VENLAFAXINE [Suspect]
     Active Substance: VENLAFAXINE HYDROCHLORIDE
     Dosage: 3.75 GRAM OF IMMEDIATE-RELEASE
     Route: 048
  3. PARACETAMOL [Suspect]
     Active Substance: ACETAMINOPHEN
     Indication: PRODUCT USED FOR UNKNOWN INDICATION
     Dosage: 20 GRAM,SINGLE (COULD HAVE INGESTED A MAXIMAL DOSE OF 20 G)
     Route: 048

REACTIONS (11)
  - Ejection fraction decreased [Recovered/Resolved]
  - Overdose [Unknown]
  - Cardiomyopathy [Unknown]
  - Subendocardial ischaemia [Unknown]
  - Mydriasis [Recovered/Resolved]
  - Coma [Unknown]
  - Oedema [Unknown]
  - Acute kidney injury [Recovered/Resolved]
  - Pyrexia [Unknown]
  - Seizure [Recovered/Resolved]
  - Pulmonary congestion [Recovered/Resolved]
